FAERS Safety Report 4465972-8 (Version None)
Quarter: 2004Q4

REPORT INFORMATION
  Report Type: 
  Country: None (occurrence: None)
  Receive Date: 20041001
  Receipt Date: 20041001
  Transmission Date: 20050328
  Serious: Yes (Other)
  Sender: FDA-Public Use
  Company Number: None

PATIENT
  Age: 52 Year
  Sex: Female
  Weight: 72.5755 kg

DRUGS (1)
  1. VIOXX [Suspect]
     Indication: ARTHRITIS
     Dosage: 1 TABLET   TWICE A DAY   ORAL
     Route: 048
     Dates: start: 20021009, end: 20040930

REACTIONS (2)
  - ANAEMIA [None]
  - HAEMORRHAGE [None]
